FAERS Safety Report 9424886 (Version 3)
Quarter: 2013Q4

REPORT INFORMATION
  Report Type: Report from Study
  Country: JP (occurrence: JP)
  Receive Date: 20130729
  Receipt Date: 20131224
  Transmission Date: 20140711
  Serious: Yes (Hospitalization)
  Sender: FDA-Public Use
  Company Number: JP-AMGEN-JPNCT2013052796

PATIENT
  Age: 74 Year
  Sex: Female
  Weight: 61 kg

DRUGS (32)
  1. DARBEPOETIN ALFA [Suspect]
     Indication: NEPHROGENIC ANAEMIA
     Dosage: 30 MUG, Q2WK
     Route: 040
     Dates: start: 20110506, end: 20110812
  2. DARBEPOETIN ALFA [Suspect]
     Dosage: 30 MUG, QD
     Route: 040
     Dates: start: 20110819, end: 20110819
  3. DARBEPOETIN ALFA [Suspect]
     Dosage: 60 MUG, QD
     Route: 040
     Dates: start: 20110916, end: 20110916
  4. DARBEPOETIN ALFA [Suspect]
     Dosage: 80 MUG, QD
     Route: 040
     Dates: start: 20111021, end: 20111021
  5. DARBEPOETIN ALFA [Suspect]
     Dosage: 80 MUG, QD
     Route: 040
     Dates: start: 20111202, end: 20111202
  6. DARBEPOETIN ALFA [Suspect]
     Dosage: 80 MUG, QD
     Route: 040
     Dates: start: 20120113, end: 20120113
  7. DARBEPOETIN ALFA [Suspect]
     Dosage: 100 MUG, QD
     Route: 040
     Dates: start: 20120302, end: 20120302
  8. DARBEPOETIN ALFA [Suspect]
     Dosage: 60 MUG, Q4WK
     Route: 040
     Dates: start: 20120316, end: 20120413
  9. DARBEPOETIN ALFA [Suspect]
     Dosage: 60 MUG, Q2WK
     Route: 040
     Dates: start: 20120427, end: 20120511
  10. DARBEPOETIN ALFA [Suspect]
     Dosage: 60 MUG, Q2WK
     Route: 040
     Dates: start: 20120608, end: 20120720
  11. DARBEPOETIN ALFA [Suspect]
     Dosage: 60 MUG, Q2WK
     Route: 040
     Dates: start: 20120914, end: 20120926
  12. DARBEPOETIN ALFA [Suspect]
     Dosage: 120 MUG, Q4WK
     Route: 040
     Dates: start: 20121102, end: 20121130
  13. DARBEPOETIN ALFA [Suspect]
     Dosage: 120 MUG, Q4WK
     Route: 040
     Dates: start: 20130208, end: 20130426
  14. DARBEPOETIN ALFA [Suspect]
     Dosage: 120 MUG, QD
     Route: 040
     Dates: start: 20130614
  15. PREMINENT [Concomitant]
     Indication: NEPHROSCLEROSIS
     Dosage: 1 DF, QD
     Route: 048
     Dates: start: 20120815, end: 20120820
  16. OMEPRAL [Concomitant]
     Dosage: 20 MG, UNK
     Route: 048
  17. LIPITOR [Concomitant]
     Dosage: 10 MG, UNK
     Route: 048
  18. DEPAS [Concomitant]
     Dosage: 2 DF, UNK
     Route: 048
  19. ATELEC [Concomitant]
     Dosage: 1 DF, BID
     Route: 048
  20. VITAMEDIN [Concomitant]
     Dosage: 3 DF, UNK
     Route: 048
  21. ASPARA POTASSIUM [Concomitant]
     Dosage: 1 DF, TID
     Route: 048
  22. ARTIST [Concomitant]
     Dosage: 1 DF, BID
     Route: 048
  23. BAYASPIRIN [Concomitant]
     Dosage: 1 DF, UNK
     Route: 048
  24. TICPILONE [Concomitant]
     Dosage: 1 DF, BID
     Route: 048
  25. GOODMIN [Concomitant]
     Dosage: 2 DF, QD
     Route: 048
  26. DIART [Concomitant]
     Dosage: 0.5 DF, UNK
     Route: 048
  27. BIODIASMIN F [Concomitant]
     Dosage: 1 G, TID
     Route: 048
  28. SENNOSIDE [Concomitant]
     Dosage: 1 DF, QD
     Route: 048
  29. KREMEZIN [Concomitant]
     Indication: NEPHROSCLEROSIS
     Dosage: 2 G, TID
     Route: 048
  30. MECOBALAMIN [Concomitant]
     Dosage: 1 DF, TID
     Route: 048
  31. MECOBALAMIN [Concomitant]
     Dosage: UNK, TID
     Route: 048
  32. ASCORBIC ACID [Concomitant]
     Dosage: 0.5 G, BID
     Route: 048

REACTIONS (2)
  - Pseudomembranous colitis [Recovered/Resolved]
  - Hyponatraemia [Recovered/Resolved]
